FAERS Safety Report 11452680 (Version 2)
Quarter: 2015Q3

REPORT INFORMATION
  Report Type: Spontaneous
  Country: US (occurrence: US)
  Receive Date: 20150831
  Receipt Date: 20150916
  Transmission Date: 20151125
  Serious: No
  Sender: FDA-Public Use
  Company Number: US-ELI_LILLY_AND_COMPANY-US200908004348

PATIENT
  Sex: Female

DRUGS (32)
  1. CYMBALTA [Suspect]
     Active Substance: DULOXETINE HYDROCHLORIDE
     Dosage: 60 MG, EACH MORNING
     Route: 065
     Dates: start: 200901
  2. VITAMIN D [Concomitant]
     Active Substance: CHOLECALCIFEROL
     Dosage: UNK, DAILY (1/D)
  3. IRON [Concomitant]
     Active Substance: IRON
     Dosage: 65 MG, DAILY (1/D)
     Dates: start: 200812
  4. OMEPRAZOLE. [Concomitant]
     Active Substance: OMEPRAZOLE
     Dosage: 20 MG, DAILY (1/D)
     Dates: start: 200812
  5. ARICEPT [Concomitant]
     Active Substance: DONEPEZIL HYDROCHLORIDE
     Dosage: 10 MG, DAILY (1/D)
     Dates: start: 200901
  6. MAXZIDE [Concomitant]
     Active Substance: HYDROCHLOROTHIAZIDE\TRIAMTERENE
     Dosage: 0.5 D/F, DAILY (1/D)
     Dates: start: 200901
  7. KCL [Concomitant]
     Active Substance: POTASSIUM CHLORIDE
     Dosage: 10 UG, EACH MORNING
     Dates: start: 200812
  8. ISOSORBIDE DINITRATE. [Concomitant]
     Active Substance: ISOSORBIDE DINITRATE
     Dosage: 30 MG, DAILY (1/D)
     Dates: start: 200901
  9. DETROL LA [Concomitant]
     Active Substance: TOLTERODINE TARTRATE
     Dosage: 4 MG, EACH MORNING
     Dates: start: 200901
  10. ZYBAN [Concomitant]
     Active Substance: BUPROPION HYDROCHLORIDE
     Dosage: 200 MG, 2/D
  11. PROVENTIL HFA [Concomitant]
     Active Substance: ALBUTEROL SULFATE
     Dosage: 2 D/F, AS NEEDED
     Dates: start: 200812
  12. ADVAIR DISKUS [Concomitant]
     Active Substance: FLUTICASONE PROPIONATE\SALMETEROL XINAFOATE
     Dosage: 1 D/F, 2/D
     Dates: start: 200812
  13. BENADRYL [Concomitant]
     Active Substance: DIPHENHYDRAMINE HYDROCHLORIDE
     Dosage: 25 MG, AS NEEDED
     Dates: start: 200812
  14. HYDROCODONE BITARTRATE AND ACETAMINOPHEN [Concomitant]
     Active Substance: ACETAMINOPHEN\HYDROCODONE BITARTRATE
     Dosage: UNK, 3/D
     Dates: start: 200812
  15. OMEGA 3 FISH OIL [Concomitant]
     Active Substance: FISH OIL\OMEGA-3 FATTY ACIDS
     Dosage: 1000 MG, 2/D
     Dates: start: 200812
  16. REQUIP [Concomitant]
     Active Substance: ROPINIROLE HYDROCHLORIDE
     Dosage: 3 MG, 2/D
     Dates: start: 200901
  17. CALCIUM [Concomitant]
     Active Substance: CALCIUM
     Dosage: 600 MG, 2/D
     Dates: start: 200812
  18. LIPITOR [Concomitant]
     Active Substance: ATORVASTATIN CALCIUM
     Dosage: 80 MG, DAILY (1/D)
     Dates: start: 200901
  19. BENAZEPRIL HYDROCHLORIDE. [Concomitant]
     Active Substance: BENAZEPRIL HYDROCHLORIDE
     Dosage: 10 MG, DAILY (1/D)
     Dates: start: 200901
  20. MULTIVITAMIN [Concomitant]
     Active Substance: VITAMINS
     Dosage: UNK, EACH MORNING
  21. VITAMIN B12 [Concomitant]
     Active Substance: CYANOCOBALAMIN
     Dosage: 1000 UG, UNK
     Dates: start: 200812
  22. PLAQUENIL [Concomitant]
     Active Substance: HYDROXYCHLOROQUINE SULFATE
     Dosage: 200 MG, 2/D
     Dates: start: 200812
  23. FORTEO [Suspect]
     Active Substance: TERIPARATIDE
     Indication: OSTEOPOROSIS
     Dosage: 20 UG, DAILY (1/D)
     Route: 065
     Dates: start: 20090601, end: 2009
  24. ROPINIROLE. [Concomitant]
     Active Substance: ROPINIROLE
     Dosage: 1 MG, DAILY (1/D)
  25. ASA [Concomitant]
     Active Substance: ASPIRIN
     Dosage: 81 MG, EACH MORNING
     Dates: start: 200812
  26. LYRICA [Concomitant]
     Active Substance: PREGABALIN
     Dosage: 75 MG, 3/D
     Dates: start: 200901
  27. PREDNISONE. [Concomitant]
     Active Substance: PREDNISONE
     Dosage: 10 MG, 2/D
     Dates: start: 200901
  28. LACTULOSE. [Concomitant]
     Active Substance: LACTULOSE
     Dosage: UNK, AS NEEDED
     Dates: start: 200904
  29. NAMENDA [Concomitant]
     Active Substance: MEMANTINE HYDROCHLORIDE
     Dosage: 10 MG, 2/D
     Route: 048
  30. LABETALOL HCL [Concomitant]
     Active Substance: LABETALOL HYDROCHLORIDE
     Dosage: 200 MG, 2/D
     Dates: start: 200812
  31. PLAVIX [Concomitant]
     Active Substance: CLOPIDOGREL BISULFATE
     Dosage: 75 MG, DAILY (1/D)
     Dates: start: 200812
  32. KEPPRA [Concomitant]
     Active Substance: LEVETIRACETAM
     Dosage: 500 MG, DAILY (1/D)
     Dates: start: 200901

REACTIONS (1)
  - Adverse event [Recovered/Resolved]

NARRATIVE: CASE EVENT DATE: 2009
